FAERS Safety Report 6679311-5 (Version None)
Quarter: 2010Q2

REPORT INFORMATION
  Report Type: 
  Country: None (occurrence: None)
  Receive Date: 20100413
  Receipt Date: 20100330
  Transmission Date: 20101027
  Serious: Yes (Hospitalization, Other)
  Sender: FDA-Public Use
  Company Number: IE-MEDIMMUNE-MEDI-0010654

PATIENT
  Sex: Female

DRUGS (1)
  1. SYNAGIS [Suspect]
     Indication: RESPIRATORY SYNCYTIAL VIRUS INFECTION
     Route: 030
     Dates: start: 20100125

REACTIONS (3)
  - CYANOSIS [None]
  - GASTROINTESTINAL TUBE INSERTION [None]
  - MALAISE [None]
